FAERS Safety Report 23435944 (Version 3)
Quarter: 2024Q1

REPORT INFORMATION
  Report Type: Spontaneous
  Country: US (occurrence: US)
  Receive Date: 20240124
  Receipt Date: 20240212
  Transmission Date: 20240410
  Serious: Yes (Other)
  Sender: FDA-Public Use
  Company Number: US-BIOGEN-2024BI01243756

PATIENT
  Age: 67 Year
  Sex: Female

DRUGS (1)
  1. VUMERITY [Suspect]
     Active Substance: DIROXIMEL FUMARATE
     Indication: Multiple sclerosis
     Route: 050
     Dates: start: 20210809

REACTIONS (4)
  - Blood pressure increased [Recovered/Resolved]
  - Retinal vascular thrombosis [Unknown]
  - Hypoacusis [Unknown]
  - Balance disorder [Unknown]

NARRATIVE: CASE EVENT DATE: 20231225
